FAERS Safety Report 8283154-9 (Version None)
Quarter: 2012Q2

REPORT INFORMATION
  Report Type: 
  Country: None (occurrence: None)
  Receive Date: 20120413
  Receipt Date: 20120404
  Transmission Date: 20120825
  Serious: Yes (Other)
  Sender: FDA-Public Use
  Company Number: JP-GLAXOSMITHKLINE-B0794273A

PATIENT
  Age: 75 Year
  Sex: Female

DRUGS (1)
  1. REQUIP [Suspect]
     Indication: PARKINSON'S DISEASE
     Dosage: 3MG PER DAY
     Route: 048

REACTIONS (4)
  - PARKINSON'S DISEASE [None]
  - MOBILITY DECREASED [None]
  - CAMPTOCORMIA [None]
  - DYSSTASIA [None]
